FAERS Safety Report 6690494-3 (Version None)
Quarter: 2010Q2

REPORT INFORMATION
  Report Type: 
  Country: None (occurrence: None)
  Receive Date: 20100420
  Receipt Date: 20100420
  Transmission Date: 20101027
  Serious: Yes (Life-Threatening, Other)
  Sender: FDA-Public Use
  Company Number: None

PATIENT
  Age: 71 Year
  Sex: Female
  Weight: 38.1022 kg

DRUGS (1)
  1. FORTEO [Suspect]
     Indication: BONE DENSITY DECREASED
     Dosage: INJECTIONS DA SQ
     Route: 058

REACTIONS (6)
  - ASTHENIA [None]
  - CONTUSION [None]
  - FALL [None]
  - HEAD INJURY [None]
  - VOMITING [None]
  - WEIGHT DECREASED [None]
